FAERS Safety Report 19948682 (Version 1)
Quarter: 2021Q4

REPORT INFORMATION
  Report Type: Spontaneous
  Country: None (occurrence: US)
  Receive Date: 20211012
  Receipt Date: 20211012
  Transmission Date: 20220303
  Serious: Yes (Other)
  Sender: FDA-Public Use
  Company Number: US-ACELLA PHARMACEUTICALS, LLC-2120480

PATIENT
  Age: 25 Year
  Sex: Male

DRUGS (2)
  1. PHENYTOIN SODIUM [Suspect]
     Active Substance: PHENYTOIN SODIUM
     Indication: Seizure
     Route: 065
  2. DABIGATRAN [Suspect]
     Active Substance: DABIGATRAN
     Route: 065

REACTIONS (2)
  - Cerebral venous thrombosis [Unknown]
  - Drug interaction [Unknown]
